FAERS Safety Report 10052926 (Version 1)
Quarter: 2014Q1

REPORT INFORMATION
  Report Type: Spontaneous
  Country: None (occurrence: None)
  Receive Date: 20140331
  Receipt Date: 20140331
  Transmission Date: 20141002
  Serious: Yes (Other)
  Sender: FDA-Public Use
  Company Number: SYM-2014-18900

PATIENT
  Sex: 0

DRUGS (2)
  1. DICLOFENAC [Suspect]
     Indication: PRODUCT USED FOR UNKNOWN INDICATION
     Route: 048
  2. TENOFOVIR DISOPROXIL FUMARATE [Suspect]
     Indication: PRODUCT USED FOR UNKNOWN INDICATION

REACTIONS (2)
  - Renal injury [None]
  - Glycosuria [None]
